FAERS Safety Report 7642493-2 (Version None)
Quarter: 2011Q3

REPORT INFORMATION
  Report Type: 
  Country: None (occurrence: None)
  Receive Date: 20110728
  Receipt Date: 20110726
  Transmission Date: 20111222
  Serious: Yes (Hospitalization, Other)
  Sender: FDA-Public Use
  Company Number: US-PFIZER INC-2010170273

PATIENT
  Sex: Female

DRUGS (3)
  1. CHANTIX [Suspect]
     Indication: SMOKING CESSATION THERAPY
     Dosage: STARTER PACKS
     Route: 048
     Dates: start: 20070201, end: 20070401
  2. VALTREX [Concomitant]
     Indication: HERPES VIRUS INFECTION
     Dosage: UNK
     Dates: start: 20061001
  3. DETROL LA [Concomitant]
     Indication: BLADDER DISORDER
     Dosage: UNK
     Dates: start: 20010301, end: 20090701

REACTIONS (8)
  - SUICIDE ATTEMPT [None]
  - DEPRESSION [None]
  - AGGRESSION [None]
  - ABNORMAL BEHAVIOUR [None]
  - EMOTIONAL DISTRESS [None]
  - ANXIETY [None]
  - MENTAL DISORDER [None]
  - PHYSICAL ASSAULT [None]
